FAERS Safety Report 5676543-X (Version None)
Quarter: 2008Q1

REPORT INFORMATION
  Report Type: 
  Country: None (occurrence: None)
  Receive Date: 20080321
  Receipt Date: 20080321
  Transmission Date: 20080703
  Serious: Yes (Life-Threatening, Hospitalization, Other)
  Sender: FDA-Public Use
  Company Number: None

PATIENT
  Sex: Female
  Weight: 61.2356 kg

DRUGS (2)
  1. INVEGA [Suspect]
     Indication: SCHIZOPHRENIA
     Dosage: 6MG  SA TAB  1 X DAY MOUTH
     Route: 048
     Dates: start: 20070827
  2. INVEGA [Suspect]
     Indication: BIPOLAR DISORDER
     Dosage: IN HOSP. 6MG 3 X A DAY ORAL IN OMHS 2008
     Route: 048
     Dates: start: 20071017, end: 20071023

REACTIONS (4)
  - CEREBROVASCULAR ACCIDENT [None]
  - DRUG INTERACTION [None]
  - DYSARTHRIA [None]
  - HYPOAESTHESIA [None]
